FAERS Safety Report 5412680-2 (Version None)
Quarter: 2007Q3

REPORT INFORMATION
  Report Type: 
  Country: None (occurrence: None)
  Receive Date: 20070813
  Receipt Date: 20070801
  Transmission Date: 20080115
  Serious: Yes (Hospitalization)
  Sender: FDA-Public Use
  Company Number: JP-SANOFI-SYNTHELABO-A01200708783

PATIENT
  Age: 47 Year
  Sex: Female

DRUGS (3)
  1. PENTAZOCINE LACTATE [Suspect]
     Indication: ANALGESIA
     Dosage: 30-45 MG DAILY
     Route: 065
  2. PENTAZOCINE LACTATE [Suspect]
     Dosage: 75-150 MG DAILY
     Route: 065
     Dates: start: 20070301, end: 20070301
  3. PENTAZOCINE LACTATE [Suspect]
     Dosage: 45-120 MG DAILY
     Route: 065
     Dates: start: 20070321

REACTIONS (2)
  - AGGRESSION [None]
  - DRUG DEPENDENCE [None]
